FAERS Safety Report 4301447-4 (Version None)
Quarter: 2004Q1

REPORT INFORMATION
  Report Type: 
  Country: None (occurrence: None)
  Receive Date: 20040219
  Receipt Date: 20040205
  Transmission Date: 20041129
  Serious: Yes (Disabling)
  Sender: FDA-Public Use
  Company Number: GBWYE535126JAN04

PATIENT
  Age: 49 Year
  Sex: Male

DRUGS (2)
  1. EFFEXOR [Suspect]
     Indication: DEPRESSION
     Route: 048
     Dates: start: 19970101, end: 19971101
  2. DOTHIEPIN HYDROCHLORIDE [Concomitant]

REACTIONS (4)
  - ANGLE CLOSURE GLAUCOMA [None]
  - EYE DISORDER [None]
  - EYE PAIN [None]
  - ULCER [None]
